FAERS Safety Report 6664774-1 (Version None)
Quarter: 2010Q2

REPORT INFORMATION
  Report Type: 
  Country: None (occurrence: None)
  Receive Date: 20100401
  Receipt Date: 20100325
  Transmission Date: 20101027
  Serious: Yes (Hospitalization)
  Sender: FDA-Public Use
  Company Number: US-AMGEN-US142678

PATIENT
  Sex: Female
  Weight: 98.2 kg

DRUGS (4)
  1. ROMIPLOSTIM [Suspect]
     Indication: IDIOPATHIC THROMBOCYTOPENIC PURPURA
     Route: 058
     Dates: start: 20041007, end: 20050712
  2. AMICAR [Concomitant]
     Route: 048
  3. IRON [Concomitant]
     Route: 048
  4. YASMIN [Concomitant]
     Dates: end: 20050301

REACTIONS (5)
  - ANAEMIA [None]
  - ANISOCYTOSIS [None]
  - HYPOCHROMASIA [None]
  - POLYCHROMASIA [None]
  - VAGINAL HAEMORRHAGE [None]
